FAERS Safety Report 4502720-7 (Version None)
Quarter: 2004Q4

REPORT INFORMATION
  Report Type: 
  Country: None (occurrence: None)
  Receive Date: 20041112
  Receipt Date: 20041105
  Transmission Date: 20050328
  Serious: Yes (Hospitalization)
  Sender: FDA-Public Use
  Company Number: SUS1-2004-00714

PATIENT
  Age: 46 Year
  Sex: Male

DRUGS (2)
  1. AGRYLIN [Suspect]
     Indication: ESSENTIAL THROMBOCYTHAEMIA
     Dosage: 1 MG, 4X/DAY;QID
     Dates: start: 20010401, end: 20040901
  2. ASPIRIN [Concomitant]

REACTIONS (2)
  - CEREBROVASCULAR ACCIDENT [None]
  - VASCULITIS CEREBRAL [None]
